FAERS Safety Report 9843605 (Version 1)
Quarter: 2013Q4

REPORT INFORMATION
  Report Type: Spontaneous
  Country: US (occurrence: None)
  Receive Date: 20131219
  Receipt Date: 20131219
  Transmission Date: 20140711
  Serious: Yes (Other)
  Sender: FDA-Public Use
  Company Number: 163-20785-13031301

PATIENT
  Age: 71 Year
  Sex: Female

DRUGS (1)
  1. THALOMID (THALIDOMIDE) (CAPSULES) [Suspect]
     Indication: PLASMA CELL MYELOMA
     Dosage: 50 MG, 28 IN 28 D, PO
     Route: 048
     Dates: start: 20130131, end: 201303

REACTIONS (1)
  - Thrombophlebitis superficial [None]
